FAERS Safety Report 5147586-X (Version None)
Quarter: 2006Q4

REPORT INFORMATION
  Report Type: 
  Country: None (occurrence: None)
  Receive Date: 20061106
  Receipt Date: 20061024
  Transmission Date: 20070319
  Serious: Yes (Other)
  Sender: FDA-Public Use
  Company Number: 2006129852

PATIENT
  Sex: Male

DRUGS (3)
  1. BENADRYL [Suspect]
     Dosage: FOUR TABLETS DAILY; FIVE
     Dates: start: 20061001, end: 20061024
  2. ETHANOL (ETHANOL) [Suspect]
     Dosage: FOUR BEERS, ORAL
     Route: 048
  3. .... [Concomitant]

REACTIONS (2)
  - ALCOHOL USE [None]
  - INCORRECT DOSE ADMINISTERED [None]
